FAERS Safety Report 13006167 (Version 1)
Quarter: 2016Q4

REPORT INFORMATION
  Report Type: Report from Study
  Country: None (occurrence: FI)
  Receive Date: 20161207
  Receipt Date: 20161207
  Transmission Date: 20170207
  Serious: Yes (Hospitalization)
  Sender: FDA-Public Use
  Company Number: FI-ABBVIE-16P-055-1802288-00

PATIENT
  Age: 76 Year
  Sex: Female

DRUGS (7)
  1. CLONAZEPAM (RIVATRIL) [Concomitant]
     Indication: PRODUCT USED FOR UNKNOWN INDICATION
  2. DUODOPA [Suspect]
     Active Substance: CARBIDOPA\LEVODOPA
     Indication: PARKINSON^S DISEASE
     Dosage: MD: 9.0, CD: 1.4, EXTRA DOSE 1.0 (TAKES 1-2 EXTRA DOSES PER DAY)
     Route: 050
  3. LEVOTHYROXINE SODIUM (THYROXIN) [Concomitant]
     Indication: PRODUCT USED FOR UNKNOWN INDICATION
  4. CALCIUM CARBONATE/CHOLECALCIFEROL (KALCIPOS D) [Concomitant]
     Indication: PRODUCT USED FOR UNKNOWN INDICATION
  5. PANTOPRAZOLE SODIUM SESQUIHYDRATE (SOMAC) [Concomitant]
     Indication: PRODUCT USED FOR UNKNOWN INDICATION
  6. PARACETAMOL [Concomitant]
     Active Substance: ACETAMINOPHEN
     Indication: PRODUCT USED FOR UNKNOWN INDICATION
     Dosage: 1X1 IN THE EVENING
  7. MAGNESIUM HYDROXIDE (EMGESAN) [Concomitant]
     Indication: PRODUCT USED FOR UNKNOWN INDICATION

REACTIONS (4)
  - Device occlusion [Unknown]
  - Tremor [Recovered/Resolved]
  - Activities of daily living impaired [Unknown]
  - Device connection issue [Unknown]

NARRATIVE: CASE EVENT DATE: 2016
